FAERS Safety Report 21520379 (Version 1)
Quarter: 2022Q4

REPORT INFORMATION
  Report Type: Spontaneous
  Country: US (occurrence: US)
  Receive Date: 20221028
  Receipt Date: 20221028
  Transmission Date: 20230113
  Serious: No
  Sender: FDA-Public Use
  Company Number: US-PERRIGO-22US002983

PATIENT
  Age: 45 Year
  Sex: Male
  Weight: 136.05 kg

DRUGS (7)
  1. NICOTINE POLACRILEX [Suspect]
     Active Substance: NICOTINE
     Indication: Smoking cessation therapy
     Dosage: 4 MG, 10 TIMES PER DAY
     Route: 002
     Dates: start: 20220129, end: 20220208
  2. BUPRENORPHINE 2CARE4 [Concomitant]
     Indication: Analgesic therapy
     Dosage: UNK
     Route: 065
     Dates: start: 202103
  3. TRAMADOL [Concomitant]
     Active Substance: TRAMADOL
     Indication: Analgesic therapy
     Dosage: UNK
     Route: 065
     Dates: start: 202103
  4. PREGABALIN [Concomitant]
     Active Substance: PREGABALIN
     Indication: Analgesic therapy
     Dosage: UNK
     Route: 065
     Dates: start: 202201
  5. METHOCARBAMOL [Concomitant]
     Active Substance: METHOCARBAMOL
     Indication: Analgesic therapy
     Dosage: UNK
     Route: 065
     Dates: start: 202001
  6. TYLENOL [Concomitant]
     Active Substance: ACETAMINOPHEN
     Indication: Analgesic therapy
     Dosage: UNK
     Route: 065
     Dates: start: 202001
  7. IBUPROFEN [Concomitant]
     Active Substance: IBUPROFEN
     Indication: Analgesic therapy
     Dosage: UNK
     Route: 065
     Dates: start: 202001

REACTIONS (6)
  - Aphthous ulcer [Recovered/Resolved]
  - Oral mucosal erythema [Recovered/Resolved]
  - Mouth swelling [Recovered/Resolved]
  - Gingival bleeding [Recovered/Resolved]
  - Dysphagia [Recovered/Resolved]
  - Stomatitis [Recovered/Resolved]

NARRATIVE: CASE EVENT DATE: 20220208
